FAERS Safety Report 9708360 (Version 1)
Quarter: 2013Q4

REPORT INFORMATION
  Report Type: Spontaneous
  Country: US (occurrence: None)
  Receive Date: 20131121
  Receipt Date: 20131121
  Transmission Date: 20140711
  Serious: Yes (Hospitalization)
  Sender: FDA-Public Use
  Company Number: 2013AP009739

PATIENT
  Age: 58 Year
  Sex: Female

DRUGS (4)
  1. DILT-XR [Suspect]
     Route: 048
  2. INSULIN [Suspect]
     Indication: TOXICITY TO VARIOUS AGENTS
  3. METFORMIN [Concomitant]
  4. CITALOPRAM [Concomitant]

REACTIONS (11)
  - Toxicity to various agents [None]
  - Overdose [None]
  - Fluid overload [None]
  - Atrioventricular block first degree [None]
  - Pulmonary oedema [None]
  - Generalised oedema [None]
  - Respiratory failure [None]
  - Dialysis [None]
  - Blood pH decreased [None]
  - Blood glucose increased [None]
  - Blood creatine increased [None]
